FAERS Safety Report 25763904 (Version 1)
Quarter: 2025Q3

REPORT INFORMATION
  Report Type: Spontaneous
  Country: US (occurrence: US)
  Receive Date: 20250905
  Receipt Date: 20250905
  Transmission Date: 20251021
  Serious: No
  Sender: DOMPE FARMACEUTICI
  Company Number: US-FARMAPROD-202411-3882

PATIENT
  Age: 78 Year
  Sex: Female

DRUGS (17)
  1. OXERVATE [Suspect]
     Active Substance: CENEGERMIN-BKBJ
     Indication: Neurotrophic keratopathy
     Route: 047
     Dates: start: 20241031
  2. THERACRAN [Concomitant]
  3. MINERALS\VITAMINS [Concomitant]
     Active Substance: MINERALS\VITAMINS
  4. MOXIFLOXACIN [Concomitant]
     Active Substance: MOXIFLOXACIN
  5. SYSTANE HYDRATION PF [Concomitant]
  6. RESTASIS [Concomitant]
     Active Substance: CYCLOSPORINE
  7. TYLENOL [Concomitant]
     Active Substance: ACETAMINOPHEN
  8. TRAMADOL HCL [Concomitant]
     Active Substance: TRAMADOL HYDROCHLORIDE
  9. XARELTO [Concomitant]
     Active Substance: RIVAROXABAN
  10. FIBER SELECT GUMMIES [Concomitant]
  11. ZINC [Concomitant]
     Active Substance: ZINC
  12. CALCIUM [Concomitant]
     Active Substance: CALCIUM
  13. VITAMIN B12 [Concomitant]
     Active Substance: CYANOCOBALAMIN
  14. VITAMINS [Concomitant]
     Active Substance: VITAMINS
  15. SIMVASTATIN [Concomitant]
     Active Substance: SIMVASTATIN
  16. SERTRALINE HYDROCHLORIDE [Concomitant]
     Active Substance: SERTRALINE HYDROCHLORIDE
  17. SALINE DROPS [Concomitant]

REACTIONS (6)
  - Wrong technique in product usage process [Unknown]
  - Eye pain [Not Recovered/Not Resolved]
  - Eye swelling [Recovering/Resolving]
  - Swelling of eyelid [Recovering/Resolving]
  - Ocular discomfort [Recovering/Resolving]
  - Device use issue [Unknown]

NARRATIVE: CASE EVENT DATE: 20241111
